FAERS Safety Report 5078740-3 (Version None)
Quarter: 2006Q3

REPORT INFORMATION
  Report Type: 
  Country: None (occurrence: None)
  Receive Date: 20060808
  Receipt Date: 20060726
  Transmission Date: 20061208
  Serious: Yes (Hospitalization, Other)
  Sender: FDA-Public Use
  Company Number: 163-21880-06060527

PATIENT
  Age: 78 Year
  Sex: Male
  Weight: 76.2043 kg

DRUGS (5)
  1. REVLIMID [Suspect]
     Indication: MYELODYSPLASTIC SYNDROME
     Dosage: 10 MG, 1 IN 1 D, ORAL
     Route: 048
     Dates: start: 20060524, end: 20060527
  2. ASPIRIN [Concomitant]
  3. SYNTHROID [Concomitant]
  4. THYROXIN (LEVOTHYROXINE SODIUM) [Concomitant]
  5. VIAGRA [Concomitant]

REACTIONS (12)
  - ARTHRALGIA [None]
  - ASTHENIA [None]
  - CANDIDIASIS [None]
  - FATIGUE [None]
  - GENERALISED OEDEMA [None]
  - HYPERHIDROSIS [None]
  - NEUTROPENIA [None]
  - PANCYTOPENIA [None]
  - PYREXIA [None]
  - RASH ERYTHEMATOUS [None]
  - TONGUE DISCOLOURATION [None]
  - TONGUE ULCERATION [None]
